FAERS Safety Report 5328708-4 (Version None)
Quarter: 2007Q2

REPORT INFORMATION
  Report Type: 
  Country: None (occurrence: None)
  Receive Date: 20070518
  Receipt Date: 20070514
  Transmission Date: 20071010
  Serious: Yes (Hospitalization, Disabling)
  Sender: FDA-Public Use
  Company Number: D0053275A

PATIENT
  Age: 64 Year
  Sex: Male
  Weight: 108 kg

DRUGS (5)
  1. AVANDIA [Suspect]
     Dosage: 4MG PER DAY
     Route: 048
     Dates: start: 20060405, end: 20070508
  2. GLIMEPIRIDE [Concomitant]
     Dosage: 2MG PER DAY
     Route: 048
  3. LISINOPRIL [Concomitant]
     Dosage: 20MG PER DAY
     Route: 048
  4. VERAPAMIL [Concomitant]
     Dosage: 240MG PER DAY
     Route: 048
  5. ALLOPURINOL [Concomitant]
     Dosage: 300MG PER DAY
     Route: 048

REACTIONS (4)
  - ANKLE FRACTURE [None]
  - BONE MARROW OEDEMA [None]
  - OSTEONECROSIS [None]
  - PATHOLOGICAL FRACTURE [None]
